FAERS Safety Report 10332254 (Version 1)
Quarter: 2014Q3

REPORT INFORMATION
  Report Type: Spontaneous
  Country: GB (occurrence: GB)
  Receive Date: 20140722
  Receipt Date: 20140722
  Transmission Date: 20150326
  Serious: Yes (Other)
  Sender: FDA-Public Use
  Company Number: GB-WATSON-2014-15619

PATIENT
  Age: 12 Year
  Sex: Male
  Weight: 23 kg

DRUGS (3)
  1. CIPROFLOXACIN HYDROCHLORIDE (UNKNOWN) [Suspect]
     Active Substance: CIPROFLOXACIN HYDROCHLORIDE
     Indication: ORCHITIS
     Dosage: 300 MG, BID
     Route: 048
     Dates: start: 20140613, end: 20140619
  2. CALPOL [Concomitant]
     Active Substance: ACETAMINOPHEN
     Indication: ORCHITIS
     Dosage: UNK
     Route: 065
  3. IBUPROFEN. [Concomitant]
     Active Substance: IBUPROFEN
     Indication: ORCHITIS
     Dosage: UNK
     Route: 065

REACTIONS (1)
  - Tendonitis [Not Recovered/Not Resolved]

NARRATIVE: CASE EVENT DATE: 20140617
